FAERS Safety Report 25677420 (Version 3)
Quarter: 2025Q3

REPORT INFORMATION
  Report Type: Spontaneous
  Country: EU (occurrence: EU)
  Receive Date: 20250813
  Receipt Date: 20250901
  Transmission Date: 20251021
  Serious: Yes (Death, Hospitalization, Other)
  Sender: BEIGENE
  Company Number: EU-BEIGENE-BGN-2025-010099

PATIENT

DRUGS (2)
  1. BRUKINSA [Suspect]
     Active Substance: ZANUBRUTINIB
     Indication: Richter^s syndrome
  2. TEVIMBRA [Suspect]
     Active Substance: TISLELIZUMAB-JSGR
     Indication: Richter^s syndrome

REACTIONS (5)
  - Lymphoma [Fatal]
  - Hip fracture [Unknown]
  - Fall [Unknown]
  - Ileus paralytic [Unknown]
  - Off label use [Unknown]
